FAERS Safety Report 11287739 (Version 1)
Quarter: 2015Q3

REPORT INFORMATION
  Report Type: Spontaneous
  Country: US (occurrence: US)
  Receive Date: 20150721
  Receipt Date: 20150721
  Transmission Date: 20151125
  Serious: No
  Sender: FDA-Public Use
  Company Number: US-UNITED THERAPEUTICS-UNT-2015-000882

PATIENT
  Age: 60 Year
  Sex: Male
  Weight: 104.31 kg

DRUGS (5)
  1. REMODULIN [Suspect]
     Active Substance: TREPROSTINIL
     Indication: PULMONARY HYPERTENSION
     Dosage: 0.044 ?G/KG/MIN, CONTINUING
     Route: 058
     Dates: start: 20111207
  2. LETAIRIS [Suspect]
     Active Substance: AMBRISENTAN
     Indication: PRODUCT USED FOR UNKNOWN INDICATION
     Dosage: 10 MG, QD
     Route: 065
     Dates: start: 20120711
  3. REMODULIN [Suspect]
     Active Substance: TREPROSTINIL
     Dosage: 0.044 ?G/KG/MIN, CONTINUING
     Route: 058
     Dates: start: 20111207
  4. ADCIRCA [Concomitant]
     Active Substance: TADALAFIL
     Indication: PRODUCT USED FOR UNKNOWN INDICATION
  5. PLAVIX [Concomitant]
     Active Substance: CLOPIDOGREL BISULFATE
     Indication: PRODUCT USED FOR UNKNOWN INDICATION
     Dosage: UNK

REACTIONS (12)
  - Infusion site pain [Unknown]
  - Oedema [Unknown]
  - Device issue [Unknown]
  - Rash [Unknown]
  - Infusion site reaction [Unknown]
  - Localised oedema [Unknown]
  - Infusion site erythema [Unknown]
  - Drug dose omission [Unknown]
  - Device dislocation [Unknown]
  - Infusion site oedema [Unknown]
  - Therapy cessation [Unknown]
  - Treatment noncompliance [Unknown]

NARRATIVE: CASE EVENT DATE: 201501
